FAERS Safety Report 4348135-6 (Version None)
Quarter: 2004Q2

REPORT INFORMATION
  Report Type: 
  Country: None (occurrence: None)
  Receive Date: 20040422
  Receipt Date: 20040409
  Transmission Date: 20050107
  Serious: Yes (Other)
  Sender: FDA-Public Use
  Company Number: A-CH2004-05795

PATIENT
  Age: 57 Year
  Sex: Male

DRUGS (10)
  1. TRACLEER [Suspect]
     Indication: PULMONARY HYPERTENSION
     Dosage: SEE IMAGE, ORAL
     Route: 048
     Dates: end: 20040206
  2. TRACLEER [Suspect]
     Indication: PULMONARY HYPERTENSION
     Dosage: SEE IMAGE, ORAL
     Route: 048
     Dates: start: 20030101
  3. ADALAT CRONO (NIFEDIPINE) [Concomitant]
  4. LASIX [Concomitant]
  5. ALDACTONE [Concomitant]
  6. EUPRESSYL (URAPIDIL) [Concomitant]
  7. HYPERIUM (RILMENIDINE) [Concomitant]
  8. TAREG (VALSARTAN) [Concomitant]
  9. MIXTARD (INSULIN INJECTION, ISOPHANE, INSULIN) [Concomitant]
  10. IMOVANE (ZOPICLONE) [Concomitant]

REACTIONS (6)
  - CARDIAC OUTPUT INCREASED [None]
  - DYSPNOEA PAROXYSMAL NOCTURNAL [None]
  - GAMMA-GLUTAMYLTRANSFERASE INCREASED [None]
  - HEPATIC CONGESTION [None]
  - OEDEMA PERIPHERAL [None]
  - RENAL FAILURE [None]
